FAERS Safety Report 25838692 (Version 1)
Quarter: 2025Q3

REPORT INFORMATION
  Report Type: Spontaneous
  Country: RU (occurrence: RU)
  Receive Date: 20250924
  Receipt Date: 20250924
  Transmission Date: 20251020
  Serious: Yes (Hospitalization)
  Sender: TEVA
  Company Number: RU-TEVA-VS-3374300

PATIENT
  Age: 10 Year
  Sex: Male
  Weight: 44 kg

DRUGS (5)
  1. CETIRIZINE [Suspect]
     Active Substance: CETIRIZINE HYDROCHLORIDE
     Indication: Skin weeping
     Route: 048
     Dates: start: 20240916
  2. CHLORHEXIDINE [Suspect]
     Active Substance: CHLORHEXIDINE
     Indication: Anti-infective therapy
     Route: 065
     Dates: start: 20240916, end: 2024
  3. ACYCLOVIR [Suspect]
     Active Substance: ACYCLOVIR
     Indication: Anti-infective therapy
     Route: 048
     Dates: start: 20240925
  4. ZINC [Suspect]
     Active Substance: ZINC
     Indication: Skin weeping
     Route: 065
     Dates: start: 20240916
  5. CEFTRIAXONE [Suspect]
     Active Substance: CEFTRIAXONE
     Indication: Anti-infective therapy
     Route: 042
     Dates: start: 20240925, end: 2024

REACTIONS (2)
  - Trichophytic granuloma [Recovering/Resolving]
  - Drug ineffective [Unknown]

NARRATIVE: CASE EVENT DATE: 20240101
